FAERS Safety Report 16921100 (Version 1)
Quarter: 2019Q4

REPORT INFORMATION
  Report Type: Spontaneous
  Country: US (occurrence: US)
  Receive Date: 20191015
  Receipt Date: 20191015
  Transmission Date: 20200122
  Serious: Yes (Hospitalization)
  Sender: FDA-Public Use
  Company Number: US-US WORLDMEDS, LLC-USW201910-001908

PATIENT
  Age: 67 Year
  Sex: Male

DRUGS (4)
  1. NADOLOL. [Suspect]
     Active Substance: NADOLOL
     Indication: VARICES OESOPHAGEAL
  2. DOPAMINE [Concomitant]
     Active Substance: DOPAMINE HYDROCHLORIDE
  3. DILTIAZEM. [Concomitant]
     Active Substance: DILTIAZEM
     Indication: ATRIAL FIBRILLATION
  4. GLUCAGON. [Concomitant]
     Active Substance: GLUCAGON

REACTIONS (5)
  - Renal failure [Unknown]
  - Bradycardia [Unknown]
  - Hyperkalaemia [Unknown]
  - Product use in unapproved indication [Unknown]
  - Shock [Unknown]
